FAERS Safety Report 6406294-5 (Version None)
Quarter: 2009Q4

REPORT INFORMATION
  Report Type: 
  Country: None (occurrence: None)
  Receive Date: 20091019
  Receipt Date: 20091008
  Transmission Date: 20100525
  Serious: Yes (Hospitalization)
  Sender: FDA-Public Use
  Company Number: PHHO2009GB12420

PATIENT
  Sex: Male
  Weight: 80.4 kg

DRUGS (9)
  1. DICLOFENAC SODIUM [Suspect]
     Dosage: 75MG
     Route: 048
     Dates: start: 20010514, end: 20090812
  2. ALBUTEROL SULFATE AUTOHALER [Concomitant]
  3. ALBUTEROL [Concomitant]
  4. PARACETAMOL [Concomitant]
  5. METFORMIN HYDROCHLORIDE [Concomitant]
  6. PERINDOPRIL [Concomitant]
  7. ASPIRIN [Concomitant]
  8. BECLOMETASONE DIPROPIONATE [Concomitant]
  9. INSULIN GLARGINE [Concomitant]

REACTIONS (27)
  - ABDOMINAL DISTENSION [None]
  - ABDOMINAL PAIN [None]
  - ASCITES [None]
  - ATRIAL SEPTAL DEFECT ACQUIRED [None]
  - BLOOD ALKALINE PHOSPHATASE INCREASED [None]
  - BLOOD BILIRUBIN INCREASED [None]
  - BLOOD PRESSURE SYSTOLIC DECREASED [None]
  - CARDIAC FAILURE [None]
  - CARDIAC FAILURE CONGESTIVE [None]
  - CARDIOMEGALY [None]
  - DILATATION VENTRICULAR [None]
  - DYSPNOEA [None]
  - HEART RATE INCREASED [None]
  - HEPATIC CONGESTION [None]
  - HEPATOMEGALY [None]
  - LEFT ATRIAL DILATATION [None]
  - LEFT VENTRICULAR DYSFUNCTION [None]
  - LEFT VENTRICULAR FAILURE [None]
  - MITRAL VALVE INCOMPETENCE [None]
  - OEDEMA PERIPHERAL [None]
  - PULMONARY CONGESTION [None]
  - RENAL FAILURE CHRONIC [None]
  - RIGHT ATRIAL DILATATION [None]
  - TRICUSPID VALVE INCOMPETENCE [None]
  - VENTRICULAR HYPERTROPHY [None]
  - VENTRICULAR HYPOKINESIA [None]
  - WHEEZING [None]
